FAERS Safety Report 9846004 (Version 3)
Quarter: 2014Q1

REPORT INFORMATION
  Report Type: Report from Study
  Country: US (occurrence: US)
  Receive Date: 20140127
  Receipt Date: 20140210
  Transmission Date: 20141002
  Serious: Yes (Hospitalization)
  Sender: FDA-Public Use
  Company Number: US-ACTELION-A-NJ2011-46069

PATIENT
  Age: 70 Year
  Sex: Female

DRUGS (2)
  1. TRACLEER [Suspect]
     Indication: PULMONARY ARTERIAL HYPERTENSION
     Dosage: 125 MG, BID
     Route: 048
     Dates: start: 200310
  2. TRACLEER [Suspect]
     Dosage: 62.5 MG, BID
     Route: 048
     Dates: start: 200310, end: 200310

REACTIONS (8)
  - Blood glucose decreased [Unknown]
  - Malaise [Unknown]
  - Renal failure [Recovering/Resolving]
  - Cardiac failure congestive [Recovering/Resolving]
  - Pulmonary arterial hypertension [Recovering/Resolving]
  - Urinary tract infection [Recovering/Resolving]
  - Atrial fibrillation [Recovering/Resolving]
  - Feeling abnormal [Unknown]
